FAERS Safety Report 24223202 (Version 1)
Quarter: 2024Q3

REPORT INFORMATION
  Report Type: Spontaneous
  Country: CH (occurrence: CH)
  Receive Date: 20240819
  Receipt Date: 20240819
  Transmission Date: 20241016
  Serious: Yes (Hospitalization)
  Sender: BAXTER
  Company Number: None

PATIENT
  Age: 60 Year
  Sex: Female

DRUGS (5)
  1. OLIVE OIL\SOYBEAN OIL [Suspect]
     Active Substance: OLIVE OIL\SOYBEAN OIL
     Dosage: UNK
     Route: 040
     Dates: start: 20240701, end: 20240701
  2. BUPIVACAINE [Suspect]
     Active Substance: BUPIVACAINE
     Indication: Fibromyalgia
     Dosage: 60 (MILLIGRAMS), IN TOTAL, ON BOTH SIDES WITH BUPIVACAINE 0.5%, 3 ML PER MUSCLE AND SIDE (CUMULATIVE
     Route: 030
     Dates: start: 20240701, end: 20240701
  3. METOPROLOL SUCCINATE [Concomitant]
     Active Substance: METOPROLOL SUCCINATE
     Dosage: 25 (MILLIGRAMS), IN 12 HOURS, MAH: SANDOZ PHARMACEUTICALS
     Route: 048
  4. DIPYRONE [Concomitant]
     Active Substance: DIPYRONE
     Dosage: (AS NECESSARY), 1 DF
     Route: 048
  5. PREGABALIN [Concomitant]
     Active Substance: PREGABALIN
     Dosage: 100 (MILLIGRAMS), IN 1 DAY
     Route: 048

REACTIONS (6)
  - Dizziness [Recovered/Resolved]
  - Dysgeusia [Recovered/Resolved]
  - Orthostatic intolerance [Recovered/Resolved]
  - Hypertension [Recovered/Resolved]
  - Tremor [Recovered/Resolved]
  - Toxicity to various agents [Recovered/Resolved]

NARRATIVE: CASE EVENT DATE: 20240701
